FAERS Safety Report 7781464-2 (Version None)
Quarter: 2011Q3

REPORT INFORMATION
  Report Type: 
  Country: None (occurrence: None)
  Receive Date: 20110923
  Receipt Date: 20110908
  Transmission Date: 20111222
  Serious: Yes (Life-Threatening, Hospitalization)
  Sender: FDA-Public Use
  Company Number: AUR-APL-2011-05005

PATIENT
  Age: 79 Year
  Sex: Female

DRUGS (14)
  1. ADCAL-D3 (LEKOVIT CA) [Concomitant]
  2. LAMOTRIGINE [Suspect]
     Indication: CONVULSION
     Dosage: 50 MG (25 MG,2 IN 1 D),ORAL ; 100 MG (50 MG,2 IN 1 D),ORAL
     Route: 048
     Dates: start: 20110806, end: 20110810
  3. LAMOTRIGINE [Suspect]
     Indication: CONVULSION
     Dosage: 50 MG (25 MG,2 IN 1 D),ORAL ; 100 MG (50 MG,2 IN 1 D),ORAL
     Route: 048
     Dates: start: 20110811, end: 20110822
  4. BENDROFLUMETHIAZIDE (BENDROFLUMETHIAZIDE) [Concomitant]
  5. ACETAMINOPHEN [Concomitant]
  6. BISOPROLOL FUMARATE [Concomitant]
  7. PHENYTOIN [Concomitant]
  8. CITALOPRAM HYDROBROMIDE [Concomitant]
  9. ZOLPIDEM [Concomitant]
  10. ASPIRIN [Concomitant]
  11. ACETAMINOPHEN W/ CODEINE [Concomitant]
  12. OMEPRAZOLE [Concomitant]
  13. PERINDOPRIL ERBUMINE [Concomitant]
  14. TRAVOPROST (TRAVOPROST) [Concomitant]

REACTIONS (10)
  - ESCHERICHIA INFECTION [None]
  - PLATELET COUNT DECREASED [None]
  - CULTURE URINE POSITIVE [None]
  - APPARENT LIFE THREATENING EVENT [None]
  - HAEMOGLOBIN DECREASED [None]
  - BLOOD COUNT ABNORMAL [None]
  - RASH ERYTHEMATOUS [None]
  - PALLOR [None]
  - SKIN WARM [None]
  - NEUTROPENIC SEPSIS [None]
